FAERS Safety Report 9809324 (Version 4)
Quarter: 2014Q1

REPORT INFORMATION
  Report Type: Report from Study
  Country: JP (occurrence: JP)
  Receive Date: 20140110
  Receipt Date: 20140203
  Transmission Date: 20141002
  Serious: Yes (Hospitalization)
  Sender: FDA-Public Use
  Company Number: JP-B.I. PHARMACEUTICALS,INC./RIDGEFIELD-2013-BI-43216NB

PATIENT
  Age: 79 Year
  Sex: Female
  Weight: 45 kg

DRUGS (10)
  1. PRAZAXA [Suspect]
     Indication: CEREBROVASCULAR ACCIDENT PROPHYLAXIS
     Dosage: 220 MG
     Route: 048
     Dates: start: 20131108, end: 20131217
  2. ARTIST [Concomitant]
     Dosage: 2.5 MG
     Route: 048
  3. RENIVACE [Concomitant]
     Dosage: 2.5 MG
     Route: 048
  4. FUROSEMIDE [Concomitant]
     Dosage: 20 MG
     Route: 048
     Dates: end: 20131216
  5. ALDACTONE A [Concomitant]
     Dosage: 25 MG
     Route: 048
  6. ALLORIN [Concomitant]
     Dosage: 100 MG
     Route: 048
     Dates: end: 20131216
  7. FOLIAMIN [Concomitant]
     Dosage: 5 MG
     Route: 048
     Dates: end: 20131216
  8. RABEPRAZOLE NA [Concomitant]
     Dosage: 20 MG
     Route: 048
     Dates: end: 20131216
  9. AMINOVACT [Concomitant]
     Dosage: 14.22 G
     Route: 048
     Dates: end: 20131216
  10. MIYA BM [Concomitant]
     Dosage: 6DF
     Route: 048
     Dates: end: 20131216

REACTIONS (2)
  - Cardiac failure chronic [Recovered/Resolved]
  - Renal failure chronic [Recovered/Resolved]
